FAERS Safety Report 12390573 (Version 1)
Quarter: 2016Q2

REPORT INFORMATION
  Report Type: Spontaneous
  Country: FR (occurrence: FR)
  Receive Date: 20160520
  Receipt Date: 20160520
  Transmission Date: 20160815
  Serious: Yes (Hospitalization, Other)
  Sender: FDA-Public Use
  Company Number: FR-009507513-0801FRA00071

PATIENT
  Age: 45 Year
  Sex: Male
  Weight: 79 kg

DRUGS (3)
  1. TRUVADA [Suspect]
     Active Substance: EMTRICITABINE\TENOFOVIR DISOPROXIL FUMARATE
     Indication: HIV INFECTION
     Dosage: 1 DF PER DAY
     Route: 048
     Dates: start: 20071010, end: 20071120
  2. TMC-125 [Suspect]
     Active Substance: ETRAVIRINE
     Indication: HIV INFECTION
     Dosage: 200 MG, 2 PER DAY
     Route: 048
     Dates: start: 20071010, end: 20071120
  3. ISENTRESS [Suspect]
     Active Substance: RALTEGRAVIR POTASSIUM
     Indication: HIV INFECTION
     Dosage: 400 MG, 2 PER DAY
     Route: 048
     Dates: start: 20071010, end: 20071120

REACTIONS (2)
  - Pancreatitis [Not Recovered/Not Resolved]
  - Lipase increased [Not Recovered/Not Resolved]

NARRATIVE: CASE EVENT DATE: 20071119
